FAERS Safety Report 7378737-4 (Version None)
Quarter: 2011Q1

REPORT INFORMATION
  Report Type: 
  Country: None (occurrence: None)
  Receive Date: 20110328
  Receipt Date: 20110317
  Transmission Date: 20110831
  Serious: Yes (Hospitalization, Other)
  Sender: FDA-Public Use
  Company Number: US-ASTRAZENECA-2011SE03175

PATIENT
  Age: 63 Year
  Sex: Female
  Weight: 93 kg

DRUGS (4)
  1. AMBIEN [Concomitant]
     Route: 065
  2. SEROQUEL [Suspect]
     Indication: NERVOUSNESS
     Route: 048
     Dates: start: 19980101, end: 20110301
  3. MIRTAZAPINE [Concomitant]
     Route: 065
  4. DOXEPIN [Concomitant]
     Route: 065

REACTIONS (5)
  - LOWER LIMB FRACTURE [None]
  - NERVOUSNESS [None]
  - FALL [None]
  - DRUG DOSE OMISSION [None]
  - JOINT INJURY [None]
